FAERS Safety Report 25916483 (Version 2)
Quarter: 2025Q4

REPORT INFORMATION
  Report Type: Spontaneous
  Country: EU (occurrence: None)
  Receive Date: 20251014
  Receipt Date: 20251016
  Transmission Date: 20260118
  Serious: Yes (Other)
  Sender: UCB
  Company Number: None

PATIENT
  Age: 62 Year

DRUGS (5)
  1. VIMPAT [Suspect]
     Active Substance: LACOSAMIDE
     Indication: Epilepsy
     Dosage: 200MG IN THE MORNING, 150MG IN THE EVENING, TWICE A DAY
  2. VIMPAT [Suspect]
     Active Substance: LACOSAMIDE
     Indication: Product ineffective
  3. CLOBAZAM [Suspect]
     Active Substance: CLOBAZAM
     Indication: Epilepsy
     Dosage: 10 MG IN EVENING
  4. CLOBAZAM [Suspect]
     Active Substance: CLOBAZAM
     Indication: Product ineffective
  5. CITALOPRAM [Concomitant]
     Active Substance: CITALOPRAM
     Indication: Depression
     Dosage: 10 DROPS IN EVENING

REACTIONS (2)
  - Epilepsy [Unknown]
  - Treatment failure [Unknown]
